FAERS Safety Report 9031071 (Version 1)
Quarter: 2013Q1

REPORT INFORMATION
  Report Type: Spontaneous
  Country: GB (occurrence: GB)
  Receive Date: 20130123
  Receipt Date: 20130123
  Transmission Date: 20140127
  Serious: Yes (Other)
  Sender: FDA-Public Use
  Company Number: GB-PFIZER INC-2013026169

PATIENT
  Age: 57 Year
  Sex: Male
  Weight: 90 kg

DRUGS (10)
  1. DOXAZOSIN MESILATE [Suspect]
     Indication: HYPERTENSION
     Dosage: 4 MG, UNK
     Route: 048
     Dates: start: 20121212
  2. MODAFINIL [Concomitant]
  3. OMEPRAZOLE [Concomitant]
  4. ROPINIROLE [Concomitant]
  5. TRAMADOL [Concomitant]
  6. AMLODIPINE [Concomitant]
  7. BENDROFLUMETHIAZIDE [Concomitant]
  8. DULOXETINE [Concomitant]
  9. FYBOGEL [Concomitant]
  10. LISINOPRIL [Concomitant]

REACTIONS (1)
  - Depression suicidal [Recovered/Resolved]
